FAERS Safety Report 15213150 (Version 4)
Quarter: 2018Q4

REPORT INFORMATION
  Report Type: Spontaneous
  Country: US (occurrence: US)
  Receive Date: 20180730
  Receipt Date: 20181201
  Transmission Date: 20190204
  Serious: Yes (Other)
  Sender: FDA-Public Use
  Company Number: US-PFIZER INC-2018299967

PATIENT
  Age: 38 Year
  Sex: Female

DRUGS (1)
  1. XELJANZ [Suspect]
     Active Substance: TOFACITINIB CITRATE
     Dosage: UNK
     Route: 048
     Dates: start: 2013

REACTIONS (9)
  - Tuberculosis [Unknown]
  - Musculoskeletal discomfort [Unknown]
  - Myalgia [Unknown]
  - Hypoaesthesia [Unknown]
  - Fatigue [Unknown]
  - Agitation [Unknown]
  - Amnesia [Unknown]
  - Arthralgia [Unknown]
  - Paraesthesia [Unknown]
